FAERS Safety Report 6896118-4 (Version None)
Quarter: 2010Q3

REPORT INFORMATION
  Report Type: 
  Country: None (occurrence: None)
  Receive Date: 20100802
  Receipt Date: 20100727
  Transmission Date: 20110219
  Serious: Yes (Life-Threatening, Hospitalization, Other)
  Sender: FDA-Public Use
  Company Number: A0864545A

PATIENT
  Age: 60 Year
  Sex: Female
  Weight: 68.2 kg

DRUGS (10)
  1. PROMACTA [Suspect]
     Indication: IDIOPATHIC THROMBOCYTOPENIC PURPURA
     Dosage: 75MG PER DAY
     Route: 048
     Dates: start: 20100201, end: 20100708
  2. STATINS [Suspect]
  3. PRILOSEC [Concomitant]
     Route: 048
     Dates: start: 20081101
  4. PREDNISONE [Concomitant]
     Indication: IDIOPATHIC THROMBOCYTOPENIC PURPURA
     Route: 048
     Dates: start: 20081101
  5. HYDROCHLOROTHIAZIDE [Concomitant]
     Indication: HYPERTENSION
     Route: 048
     Dates: start: 20081101
  6. KLOR-CON [Concomitant]
     Indication: HYPERTENSION
     Dates: start: 20081101
  7. CORTICOSTEROIDS [Concomitant]
     Indication: IDIOPATHIC THROMBOCYTOPENIC PURPURA
     Dates: start: 20060301
  8. TEMAZEPAM [Concomitant]
     Indication: SLEEP DISORDER
     Dates: start: 20081101
  9. CALCITONIN SALMON [Concomitant]
     Indication: OSTEOPENIA
     Dates: start: 20081101
  10. CHEMOTHERAPY [Concomitant]

REACTIONS (29)
  - ACUTE MYOCARDIAL INFARCTION [None]
  - ARTERIOGRAM CORONARY [None]
  - ARTERIOSPASM CORONARY [None]
  - ASTHENIA [None]
  - CARDIAC DISORDER [None]
  - CARDIAC VENTRICULOGRAM LEFT [None]
  - CATHETERISATION CARDIAC [None]
  - CHEST PAIN [None]
  - CORONARY ARTERY DISEASE [None]
  - CORONARY ARTERY OCCLUSION [None]
  - DECREASED APPETITE [None]
  - DIZZINESS [None]
  - DRUG INTERACTION [None]
  - ELECTROCARDIOGRAM ST SEGMENT ELEVATION [None]
  - EMBOLISM ARTERIAL [None]
  - EXERCISE TOLERANCE DECREASED [None]
  - FATIGUE [None]
  - FEELING ABNORMAL [None]
  - HYPERHIDROSIS [None]
  - HYPOAESTHESIA [None]
  - LIVER DISORDER [None]
  - MYOCARDIAL INFARCTION [None]
  - NAUSEA [None]
  - PAIN [None]
  - PAIN IN EXTREMITY [None]
  - PLATELET COUNT INCREASED [None]
  - RADIATION ASSOCIATED PAIN [None]
  - THROMBOSIS [None]
  - TROPONIN INCREASED [None]
